FAERS Safety Report 24394193 (Version 2)
Quarter: 2024Q4

REPORT INFORMATION
  Report Type: Spontaneous
  Country: JP (occurrence: JP)
  Receive Date: 20241004
  Receipt Date: 20241023
  Transmission Date: 20250115
  Serious: Yes (Other)
  Sender: SANOFI AVENTIS
  Company Number: JP-SA-2024SA281523

PATIENT

DRUGS (1)
  1. ENJAYMO [Suspect]
     Active Substance: SUTIMLIMAB-JOME
     Indication: Product used for unknown indication
     Route: 041

REACTIONS (2)
  - Febrile neutropenia [Recovered/Resolved]
  - Pyrexia [Recovered/Resolved]

NARRATIVE: CASE EVENT DATE: 20240926
